FAERS Safety Report 8387590-1 (Version None)
Quarter: 2012Q2

REPORT INFORMATION
  Report Type: 
  Country: None (occurrence: None)
  Receive Date: 20120525
  Receipt Date: 20120522
  Transmission Date: 20120825
  Serious: Yes (Other)
  Sender: FDA-Public Use
  Company Number: PHEH2011US02569

PATIENT
  Sex: Female
  Weight: 139 kg

DRUGS (11)
  1. DIAZEPAM [Concomitant]
     Dosage: UNK UKN, UNK
  2. OXYCODONE HCL [Concomitant]
     Dosage: UNK UKN, UNK
  3. NUVIGIL [Concomitant]
     Dosage: UNK UKN, UNK
  4. ZOLPIDEM [Concomitant]
     Dosage: UNK UKN, UNK
  5. OXYCONTIN [Concomitant]
     Dosage: UNK UKN, UNK
  6. GILENYA [Suspect]
     Indication: MULTIPLE SCLEROSIS
     Dosage: 0.5 MG, QD
     Route: 048
     Dates: start: 20110812, end: 20110812
  7. CYMBALTA [Concomitant]
     Dosage: UNK UKN, UNK
  8. ALPRAZOLAM [Concomitant]
     Dosage: UNK UKN, UNK
  9. LYRICA [Concomitant]
     Dosage: UNK UKN, UNK
  10. DIHYDROERGOTAMINE MESYLATE [Concomitant]
     Dosage: UNK UKN, UNK
  11. LEVOTHYROXINE SODIUM [Concomitant]
     Dosage: UNK UKN, UNK

REACTIONS (6)
  - MYOCARDIAL INFARCTION [None]
  - BRADYCARDIA [None]
  - CHEST PAIN [None]
  - PAIN IN EXTREMITY [None]
  - VOMITING [None]
  - CHEST DISCOMFORT [None]
